FAERS Safety Report 7988556-3 (Version None)
Quarter: 2011Q4

REPORT INFORMATION
  Report Type: 
  Country: None (occurrence: None)
  Receive Date: 20111218
  Receipt Date: 20110719
  Transmission Date: 20120403
  Serious: Yes (Hospitalization)
  Sender: FDA-Public Use
  Company Number: PHHY2011US63298

PATIENT
  Sex: Female
  Weight: 72.576 kg

DRUGS (7)
  1. DITROPAN XL [Concomitant]
     Indication: INCONTINENCE
     Dosage: 10 MG, BID
     Route: 048
     Dates: start: 20060202
  2. VITAMIN C [Concomitant]
     Indication: SUPPLEMENTATION THERAPY
     Dosage: 500 MG, QD
     Route: 048
     Dates: start: 20100701
  3. FAMPRIDINE [Concomitant]
     Indication: GAIT DISTURBANCE
     Dosage: 10 MG, BID
     Route: 048
     Dates: start: 20110702
  4. BACLOFEN [Concomitant]
     Indication: MUSCLE SPASTICITY
     Dosage: 10 MG, QID
     Route: 048
     Dates: start: 20060316
  5. MULTI-VITAMINS [Concomitant]
     Dosage: UNK UKN, UNK
  6. ASPIRIN [Concomitant]
     Dosage: 325 MG, QD
     Route: 048
     Dates: start: 20081217
  7. GILENYA [Suspect]
     Indication: MULTIPLE SCLEROSIS
     Dosage: 0.5 MG, QD
     Route: 048
     Dates: start: 20110627, end: 20110628

REACTIONS (7)
  - CEREBELLAR SYNDROME [None]
  - BRADYCARDIA [None]
  - GAIT DISTURBANCE [None]
  - ATRIOVENTRICULAR BLOCK FIRST DEGREE [None]
  - QUADRIPARESIS [None]
  - ATRIOVENTRICULAR BLOCK SECOND DEGREE [None]
  - BLOOD PRESSURE DECREASED [None]
